FAERS Safety Report 5174606-9 (Version None)
Quarter: 2006Q4

REPORT INFORMATION
  Report Type: 
  Country: None (occurrence: None)
  Receive Date: 20061206
  Receipt Date: 20061127
  Transmission Date: 20070319
  Serious: Yes (Hospitalization)
  Sender: FDA-Public Use
  Company Number: DEWYE653827NOV06

PATIENT
  Age: 70 Year
  Sex: Male

DRUGS (2)
  1. VENLAFAXINE HCL EXTENDED-RELEASE [Suspect]
     Dosage: 50 CAPSULES (OVERDOSE AMOUNT 3750 MG) ORAL
     Route: 048
     Dates: start: 20061124, end: 20061124
  2. SEROQUEL [Suspect]
     Dosage: 40 TABLETS (OVERDOSE AMOUNT 4000 MG) ORAL
     Route: 048
     Dates: start: 20061124, end: 20061124

REACTIONS (6)
  - GASTROINTESTINAL HYPOMOTILITY [None]
  - HYPOTENSION [None]
  - INTENTIONAL OVERDOSE [None]
  - SOMNOLENCE [None]
  - SUICIDE ATTEMPT [None]
  - TACHYCARDIA [None]
